FAERS Safety Report 21994736 (Version 3)
Quarter: 2024Q1

REPORT INFORMATION
  Report Type: Spontaneous
  Country: US (occurrence: US)
  Receive Date: 20230215
  Receipt Date: 20240201
  Transmission Date: 20240409
  Serious: Yes (Other)
  Sender: FDA-Public Use
  Company Number: US-PFIZER INC-PV202300027308

PATIENT
  Age: 82 Year
  Sex: Male

DRUGS (9)
  1. AMIODARONE HYDROCHLORIDE [Suspect]
     Active Substance: AMIODARONE HYDROCHLORIDE
     Indication: Cardioversion
     Dosage: 1 MG/MIN
     Route: 042
  2. AMIODARONE HYDROCHLORIDE [Suspect]
     Active Substance: AMIODARONE HYDROCHLORIDE
     Dosage: 2.2 G
  3. BISOPROLOL [Concomitant]
     Active Substance: BISOPROLOL\BISOPROLOL FUMARATE
     Dosage: UNK
  4. LOSARTAN [Concomitant]
     Active Substance: LOSARTAN
     Dosage: UNK
  5. WARFARIN [Concomitant]
     Active Substance: WARFARIN
     Dosage: UNK
  6. GABAPENTIN [Concomitant]
     Active Substance: GABAPENTIN
     Dosage: UNK
  7. IVABRADINE [Concomitant]
     Active Substance: IVABRADINE
     Dosage: UNK
  8. ALPRAZOLAM [Concomitant]
     Active Substance: ALPRAZOLAM
     Dosage: UNK
  9. SPIRONOLACTONE [Concomitant]
     Active Substance: SPIRONOLACTONE
     Dosage: UNK

REACTIONS (2)
  - Myoclonus [Recovered/Resolved]
  - Dysarthria [Recovered/Resolved]
